FAERS Safety Report 10077223 (Version 1)
Quarter: 2014Q2

REPORT INFORMATION
  Report Type: Spontaneous
  Country: IT (occurrence: IT)
  Receive Date: 20140414
  Receipt Date: 20140414
  Transmission Date: 20141212
  Serious: Yes (Other)
  Sender: FDA-Public Use
  Company Number: IT-MYLANLABS-2014S1007818

PATIENT
  Age: 71 Year
  Sex: Male

DRUGS (1)
  1. CITALOPRAM [Suspect]
     Indication: PRODUCT USED FOR UNKNOWN INDICATION
     Dosage: 40 GTT TOTAL
     Route: 048
     Dates: start: 20140317, end: 20140317

REACTIONS (3)
  - Agitation [Unknown]
  - Wrong drug administered [Unknown]
  - Tachycardia [Unknown]
